FAERS Safety Report 22823310 (Version 5)
Quarter: 2025Q4

REPORT INFORMATION
  Report Type: Report from Study
  Country: CA (occurrence: CA)
  Receive Date: 20230815
  Receipt Date: 20251008
  Transmission Date: 20260119
  Serious: Yes (Other)
  Sender: BIOCON
  Company Number: CA-MYLANLABS-2023M1048826

PATIENT

DRUGS (5)
  1. HULIO [Suspect]
     Active Substance: ADALIMUMAB-FKJP
     Indication: Crohn^s disease
     Dosage: 40 MILLIGRAM, BIWEEKLY
     Route: 058
     Dates: start: 20221115
  2. HULIO [Suspect]
     Active Substance: ADALIMUMAB-FKJP
     Dosage: 80 MILLIGRAM, QW (WEEKLY)
     Route: 065
  3. HULIO [Suspect]
     Active Substance: ADALIMUMAB-FKJP
     Dosage: 40 MILLIGRAM, QW
     Route: 058
     Dates: start: 20221115
  4. HULIO [Suspect]
     Active Substance: ADALIMUMAB-FKJP
  5. HULIO [Suspect]
     Active Substance: ADALIMUMAB-FKJP

REACTIONS (5)
  - Crohn^s disease [Unknown]
  - Inflammation [Unknown]
  - Abdominal pain [Recovered/Resolved]
  - Inappropriate schedule of product administration [Unknown]
  - Off label use [Unknown]
